FAERS Safety Report 25265358 (Version 1)
Quarter: 2025Q2

REPORT INFORMATION
  Report Type: Spontaneous
  Country: US (occurrence: US)
  Receive Date: 20250502
  Receipt Date: 20250502
  Transmission Date: 20250717
  Serious: Yes (Other)
  Sender: NOVARTIS
  Company Number: US-002147023-NVSC2025US070364

PATIENT

DRUGS (1)
  1. KESIMPTA [Suspect]
     Active Substance: OFATUMUMAB
     Indication: Product used for unknown indication
     Route: 065

REACTIONS (33)
  - Multiple sclerosis [Unknown]
  - Multiple sclerosis relapse [Unknown]
  - Mast cell activation syndrome [Unknown]
  - Tonic convulsion [Unknown]
  - Nasal congestion [Unknown]
  - Alopecia areata [Unknown]
  - Fatigue [Unknown]
  - Infection [Unknown]
  - Nasopharyngitis [Unknown]
  - Myalgia [Unknown]
  - Paraesthesia [Unknown]
  - Muscular weakness [Unknown]
  - Tremor [Unknown]
  - Chills [Unknown]
  - Pain [Unknown]
  - Headache [Unknown]
  - Nausea [Unknown]
  - Drug hypersensitivity [Unknown]
  - Hypoaesthesia [Unknown]
  - Migraine [Unknown]
  - Oropharyngeal pain [Unknown]
  - Pain in extremity [Unknown]
  - Pyrexia [Unknown]
  - Lymphoedema [Unknown]
  - Influenza like illness [Unknown]
  - Menstruation irregular [Unknown]
  - Impaired healing [Unknown]
  - Oedema peripheral [Unknown]
  - Adverse food reaction [Unknown]
  - Condition aggravated [Unknown]
  - COVID-19 [Unknown]
  - Dizziness [Unknown]
  - Respiratory tract infection [Unknown]
